FAERS Safety Report 5192673-3 (Version None)
Quarter: 2006Q4

REPORT INFORMATION
  Report Type: 
  Country: None (occurrence: None)
  Receive Date: 20061228
  Receipt Date: 20060905
  Transmission Date: 20070319
  Serious: Yes (Other)
  Sender: FDA-Public Use
  Company Number: US-BAYER-200613755BCC

PATIENT
  Age: 59 Year
  Sex: Female
  Weight: 136 kg

DRUGS (13)
  1. ALEVE [Suspect]
     Indication: DYSMENORRHOEA
     Dosage: TOTAL DAILY DOSE: 880 MG  UNIT DOSE: 220 MG
     Route: 048
     Dates: start: 20060904
  2. HYZAAR [Concomitant]
  3. MOBIC [Concomitant]
  4. HYDROCODONE BITARTRATE + ACETAMINOPHEN [Concomitant]
  5. POTASSIUM CHLORIDE [Concomitant]
  6. ZOLOFT [Concomitant]
  7. FUROSEMIDE [Concomitant]
  8. PREVACID [Concomitant]
  9. CARBIDOPA/LEVO [Concomitant]
  10. AMANTADINE HCL [Concomitant]
  11. MIRAPEX [Concomitant]
  12. DETROL [Concomitant]
  13. LIPITOR [Concomitant]

REACTIONS (2)
  - DYSMENORRHOEA [None]
  - POST PROCEDURAL HAEMORRHAGE [None]
